FAERS Safety Report 20307110 (Version 3)
Quarter: 2022Q1

REPORT INFORMATION
  Report Type: Spontaneous
  Country: CA (occurrence: CA)
  Receive Date: 20220107
  Receipt Date: 20220214
  Transmission Date: 20220423
  Serious: Yes (Hospitalization, Other)
  Sender: FDA-Public Use
  Company Number: CA-CELLTRION INC.-2021CA010833

PATIENT

DRUGS (3)
  1. INFLECTRA [Suspect]
     Active Substance: INFLIXIMAB-DYYB
     Indication: Crohn^s disease
     Dosage: 1 DF (UNKNOWN FIRST DOSE GIVEN IN HOSPITAL, AT WEEK 0)
     Route: 041
     Dates: start: 20210525, end: 20210525
  2. INFLECTRA [Suspect]
     Active Substance: INFLIXIMAB-DYYB
     Dosage: 350 MG 2, 6 WEEKS THEN EVERY 8 WEEKS
     Route: 041
     Dates: start: 20210729
  3. INFLECTRA [Suspect]
     Active Substance: INFLIXIMAB-DYYB
     Dosage: 350 MG 2, 6 WEEKS THEN EVERY 8 WEEKS
     Route: 041
     Dates: start: 20210927

REACTIONS (6)
  - Infection [Unknown]
  - Sepsis [Not Recovered/Not Resolved]
  - Condition aggravated [Unknown]
  - Pain [Unknown]
  - Arthralgia [Unknown]
  - Fatigue [Unknown]

NARRATIVE: CASE EVENT DATE: 20210927
